FAERS Safety Report 7298765-7 (Version None)
Quarter: 2011Q1

REPORT INFORMATION
  Report Type: 
  Country: None (occurrence: None)
  Receive Date: 20110217
  Receipt Date: 20110211
  Transmission Date: 20110831
  Serious: Yes (Death)
  Sender: FDA-Public Use
  Company Number: ID-ROCHE-747857

PATIENT
  Age: 34 Year
  Sex: Female
  Weight: 64 kg

DRUGS (11)
  1. PROPOFOL [Concomitant]
     Dates: start: 20100707, end: 20100707
  2. CEFTRIAXONE SODIUM [Suspect]
     Route: 065
     Dates: start: 20100704, end: 20100706
  3. RANITIDINE [Concomitant]
     Dates: start: 20100704
  4. NORCURON [Concomitant]
     Dates: start: 20100707, end: 20100707
  5. OSELTAMIVIR [Suspect]
     Indication: AVIAN INFLUENZA
     Route: 065
     Dates: start: 20100707, end: 20100707
  6. MERONEM [Concomitant]
     Dates: start: 20100707, end: 20100707
  7. ONDANSETRON [Concomitant]
     Dates: start: 20100704
  8. MIDAZOLAM [Concomitant]
     Dates: start: 20100707, end: 20100707
  9. CEFTAZIDIME [Concomitant]
     Dates: start: 20100706, end: 20100707
  10. ACETAMINOPHEN [Concomitant]
     Dates: start: 20100704
  11. DOMPERIDONE [Concomitant]
     Dates: start: 20100702, end: 20100704

REACTIONS (1)
  - ACUTE RESPIRATORY DISTRESS SYNDROME [None]
